FAERS Safety Report 25764654 (Version 1)
Quarter: 2025Q3

REPORT INFORMATION
  Report Type: Report from Study
  Country: EU (occurrence: EU)
  Receive Date: 20250905
  Receipt Date: 20250905
  Transmission Date: 20251021
  Serious: Yes (Congenital Anomaly)
  Sender: CSL BEHRING
  Company Number: EU-BEH-2025217517

PATIENT
  Weight: 3.1 kg

DRUGS (4)
  1. HUMAN RHO(D) IMMUNE GLOBULIN [Suspect]
     Active Substance: HUMAN RHO(D) IMMUNE GLOBULIN
     Route: 064
  2. FOLIC ACID [Suspect]
     Active Substance: FOLIC ACID
     Route: 064
  3. ENOXAPARIN [Suspect]
     Active Substance: ENOXAPARIN
     Route: 064
  4. PREGABALIN [Suspect]
     Active Substance: PREGABALIN
     Route: 064

REACTIONS (2)
  - Polydactyly [Unknown]
  - Foetal exposure during pregnancy [Unknown]
